FAERS Safety Report 7199215-1 (Version None)
Quarter: 2010Q4

REPORT INFORMATION
  Report Type: 
  Country: None (occurrence: None)
  Receive Date: 20101228
  Receipt Date: 20101217
  Transmission Date: 20110411
  Serious: Yes (Disabling, Other)
  Sender: FDA-Public Use
  Company Number: PHHO2007MX04425

PATIENT
  Sex: Female

DRUGS (6)
  1. STALEVO [Suspect]
     Indication: PARKINSON'S DISEASE
     Dosage: 2X 200/100/25MG A DAY
     Route: 048
     Dates: end: 20070204
  2. STALEVO [Suspect]
     Dosage: 1X 200/100/25MG A DAY
     Route: 048
     Dates: start: 20070204
  3. STALEVO [Suspect]
     Dosage: 2X200/100/2MG
     Route: 048
     Dates: start: 20080801
  4. ANAPSIQUE [Concomitant]
     Indication: TREMOR
     Dosage: 1 DF, QD
     Route: 048
     Dates: start: 20070101
  5. LEVOTHYROXINE [Concomitant]
     Indication: HYPOTHYROIDISM
     Dosage: 1 TABLET 1/4 PER DAY
     Route: 048
     Dates: start: 19600101
  6. RIVOTRIL [Concomitant]
     Indication: SLEEP DISORDER
     Dosage: 1 TABLET AT NIGHT
     Route: 048
     Dates: start: 20100305

REACTIONS (8)
  - ANXIETY [None]
  - CONVULSION [None]
  - DYSKINESIA [None]
  - INSOMNIA [None]
  - MUSCLE RIGIDITY [None]
  - MUSCULOSKELETAL STIFFNESS [None]
  - SKIN ATROPHY [None]
  - TREMOR [None]
